FAERS Safety Report 21650564 (Version 1)
Quarter: 2022Q4

REPORT INFORMATION
  Report Type: Spontaneous
  Country: US (occurrence: US)
  Receive Date: 20221128
  Receipt Date: 20221128
  Transmission Date: 20230113
  Serious: No
  Sender: FDA-Public Use
  Company Number: US-PFIZER INC-202200377819

PATIENT
  Age: 58 Year
  Sex: Female

DRUGS (1)
  1. IBRANCE [Suspect]
     Active Substance: PALBOCICLIB
     Dosage: 100 MG, CYCLIC(21 DAYS THEN 14 DAYS OFF EVERY 35 DAYS)
     Route: 048
     Dates: start: 20210829

REACTIONS (2)
  - Product dose omission issue [Unknown]
  - Dry skin [Unknown]
